FAERS Safety Report 14123705 (Version 2)
Quarter: 2018Q2

REPORT INFORMATION
  Report Type: Spontaneous
  Country: US (occurrence: US)
  Receive Date: 20171025
  Receipt Date: 20180522
  Transmission Date: 20180711
  Serious: Yes (Death)
  Sender: FDA-Public Use
  Company Number: US-ROCHE-2011018

PATIENT
  Sex: Male
  Weight: 83.3 kg

DRUGS (12)
  1. OMEPRAZOLE. [Concomitant]
     Active Substance: OMEPRAZOLE
     Route: 065
  2. ROSUVASTATIN. [Concomitant]
     Active Substance: ROSUVASTATIN
     Dosage: 1 TABLET DAILY
     Route: 048
  3. SILDENAFIL. [Concomitant]
     Active Substance: SILDENAFIL
     Route: 048
  4. TIOTROPIUM BROMIDE [Concomitant]
     Active Substance: TIOTROPIUM BROMIDE
     Dosage: 2.5 MCG/ ACTUATION IST
     Route: 065
  5. LEVOFLOXACIN. [Concomitant]
     Active Substance: LEVOFLOXACIN
     Dosage: 1 TABLET DAILY
     Route: 048
  6. METOPROLOL TARTRATE. [Concomitant]
     Active Substance: METOPROLOL TARTRATE
     Route: 048
  7. FOLIC ACID. [Concomitant]
     Active Substance: FOLIC ACID
     Route: 065
  8. SULFAMETHOXAZOL [Concomitant]
     Active Substance: SULFAMETHOXAZOLE
     Dosage: 800-160M
     Route: 065
  9. PREDNISONE. [Concomitant]
     Active Substance: PREDNISONE
     Route: 065
  10. METFORMIN HYDROCHLORIDE. [Concomitant]
     Active Substance: METFORMIN HYDROCHLORIDE
     Route: 065
  11. ASPIRIN. [Concomitant]
     Active Substance: ASPIRIN
     Dosage: TAKE 325 G DAILY
     Route: 048
  12. ESBRIET [Suspect]
     Active Substance: PIRFENIDONE
     Indication: CHRONIC OBSTRUCTIVE PULMONARY DISEASE
     Dosage: TOOK 3 TABLETS BY MOUTH THREE TIMES A DAY WITH MEALS
     Route: 048
     Dates: start: 20170725, end: 201709

REACTIONS (1)
  - Death [Fatal]
